FAERS Safety Report 7374500-9 (Version None)
Quarter: 2011Q1

REPORT INFORMATION
  Report Type: 
  Country: None (occurrence: None)
  Receive Date: 20110325
  Receipt Date: 20110124
  Transmission Date: 20110831
  Serious: No
  Sender: FDA-Public Use
  Company Number: US-MYLANLABS-2011S1001762

PATIENT
  Sex: Male

DRUGS (1)
  1. FENTANYL-100 [Suspect]
     Indication: PAIN IN EXTREMITY
     Dosage: Q 72 HOURS
     Route: 062
     Dates: start: 20110119

REACTIONS (3)
  - DECREASED APPETITE [None]
  - MUSCLE SPASMS [None]
  - INSOMNIA [None]
